FAERS Safety Report 9485106 (Version 1)
Quarter: 2013Q3

REPORT INFORMATION
  Report Type: Spontaneous
  Country: US (occurrence: US)
  Receive Date: 20130828
  Receipt Date: 20130828
  Transmission Date: 20140515
  Serious: No
  Sender: FDA-Public Use
  Company Number: US-ABBOTT-13P-163-1106777-00

PATIENT
  Age: 70 Year
  Sex: Male
  Weight: 76.27 kg

DRUGS (2)
  1. ANDROGEL [Suspect]
     Indication: BLOOD TESTOSTERONE DECREASED
     Dosage: THREE PUMPS PER DAY
     Dates: start: 201306
  2. ANDROGEL [Suspect]
     Indication: BLOOD TESTOSTERONE DECREASED
     Dosage: PACKETS
     Dates: start: 201305, end: 201306

REACTIONS (1)
  - Drug ineffective [Recovering/Resolving]
